FAERS Safety Report 8171626-7 (Version None)
Quarter: 2012Q1

REPORT INFORMATION
  Report Type: 
  Country: None (occurrence: None)
  Receive Date: 20120104
  Receipt Date: 20111115
  Transmission Date: 20120608
  Serious: No
  Sender: FDA-Public Use
  Company Number: 2011HGS-002603

PATIENT
  Age: 44 Year
  Sex: Female
  Weight: 97.5234 kg

DRUGS (6)
  1. SONATA [Concomitant]
  2. LODINE [Concomitant]
  3. BENLYSTA [Suspect]
     Indication: SYSTEMIC LUPUS ERYTHEMATOSUS
     Dosage: 10 MG/KG, 1 IN 2 WK, INTRAVENOUS DRIP
     Route: 041
     Dates: start: 20110606
  4. LEXAPRO [Concomitant]
  5. ULTRAM [Concomitant]
  6. PLAQUENIL [Concomitant]

REACTIONS (5)
  - HYPOAESTHESIA [None]
  - NAIL DISORDER [None]
  - DIZZINESS [None]
  - FATIGUE [None]
  - INFLUENZA LIKE ILLNESS [None]
